FAERS Safety Report 12550970 (Version 1)
Quarter: 2016Q3

REPORT INFORMATION
  Report Type: Other
  Country: US (occurrence: US)
  Receive Date: 20160713
  Receipt Date: 20160713
  Transmission Date: 20161109
  Serious: Yes (Hospitalization)
  Sender: FDA-Public Use
  Company Number: US-JUBILANT GENERICS LIMITED-1054986

PATIENT
  Age: 19 Year
  Sex: Male

DRUGS (2)
  1. BUPROPION. [Suspect]
     Active Substance: BUPROPION
  2. CITICOLINE TABLET [Suspect]
     Active Substance: CITICOLINE

REACTIONS (6)
  - Psychotic disorder [Recovered/Resolved]
  - Paranoia [None]
  - Intentional self-injury [Recovered/Resolved]
  - Drug interaction [Recovered/Resolved]
  - Insomnia [None]
  - Irritability [None]

NARRATIVE: CASE EVENT DATE: 20160627
